FAERS Safety Report 9684647 (Version 1)
Quarter: 2013Q4

REPORT INFORMATION
  Report Type: Spontaneous
  Country: US (occurrence: None)
  Receive Date: 20131108
  Receipt Date: 20131108
  Transmission Date: 20140711
  Serious: Yes (Hospitalization)
  Sender: FDA-Public Use
  Company Number: AUR-APL-2013-09288

PATIENT
  Age: 14 Year
  Sex: Female

DRUGS (3)
  1. CITALOPRAM [Suspect]
     Indication: PRODUCT USED FOR UNKNOWN INDICATION
     Dosage: SINGLE
     Route: 048
  2. HYDROXYZINE PAMOATE [Suspect]
     Dosage: SINGLE
     Route: 048
  3. BUPROPION [Suspect]
     Route: 048

REACTIONS (3)
  - Hyperlipidaemia [None]
  - Pancreatitis [None]
  - Overdose [None]
